FAERS Safety Report 9504277 (Version 1)
Quarter: 2013Q3

REPORT INFORMATION
  Report Type: Spontaneous
  Country: US (occurrence: None)
  Receive Date: 20130905
  Receipt Date: 20130905
  Transmission Date: 20140515
  Serious: Yes (Hospitalization, Other)
  Sender: FDA-Public Use
  Company Number: None

PATIENT
  Age: 63 Year
  Sex: Female
  Weight: 136 kg

DRUGS (14)
  1. VANCOMYCIN [Suspect]
     Indication: INTERVERTEBRAL DISCITIS
     Dosage: 1000 MG BID INTRAVENOUS
     Route: 042
     Dates: start: 20121213, end: 20131224
  2. FENTANYL [Concomitant]
  3. DIAZEPAM [Concomitant]
  4. CITALOPRAM [Concomitant]
  5. LEVOFLOXACIN [Concomitant]
  6. LIDOCAINE [Concomitant]
  7. GABAPENTIN [Concomitant]
  8. NYSTATIN [Concomitant]
  9. CLOTRIMAZOLE [Concomitant]
  10. BETAMETHASONE [Concomitant]
  11. MECLIZINE [Concomitant]
  12. SLIDING SCALE INSULIN [Concomitant]
  13. OMEPRAZOL [Concomitant]
  14. NYSTATIN [Concomitant]

REACTIONS (5)
  - Thrombocytopenia [None]
  - Tubulointerstitial nephritis [None]
  - Anti-platelet antibody positive [None]
  - Klebsiella bacteraemia [None]
  - Urinary tract infection [None]
